FAERS Safety Report 9520014 (Version 1)
Quarter: 2013Q1

REPORT INFORMATION
  Report Type: Spontaneous
  Country: US (occurrence: None)
  Receive Date: 20130305
  Receipt Date: 20130305
  Transmission Date: 20140127
  Serious: Yes (Other)
  Sender: FDA-Public Use
  Company Number: 163-21880-12013103

PATIENT
  Age: 50 Year
  Sex: Male

DRUGS (4)
  1. REVLIMID (LENALIDOMIDE) (25 MILLIGRAM, CAPSULES) [Suspect]
     Indication: PLASMA CELL MYELOMA
     Route: 048
     Dates: start: 20100609, end: 2010
  2. CARTIA XT (DILTIAZEM) (UNKNOWN) [Concomitant]
  3. LYRICA (PREGABALIN) (UNKNOWN) [Concomitant]
  4. SIMVASTATIN [Concomitant]

REACTIONS (1)
  - Pancytopenia [None]
